FAERS Safety Report 8206203-2 (Version None)
Quarter: 2012Q1

REPORT INFORMATION
  Report Type: 
  Country: None (occurrence: None)
  Receive Date: 20120313
  Receipt Date: 20120229
  Transmission Date: 20120608
  Serious: Yes (Hospitalization, Other)
  Sender: FDA-Public Use
  Company Number: PHEH2012US004896

PATIENT
  Sex: Female

DRUGS (2)
  1. AFINITOR [Suspect]
     Indication: RENAL CANCER
     Dosage: 10 MG, QD
     Route: 048
  2. AFINITOR [Suspect]
     Dosage: 10 MG, QOD
     Route: 048

REACTIONS (9)
  - HEAD INJURY [None]
  - SCIATICA [None]
  - PAIN IN EXTREMITY [None]
  - WEIGHT DECREASED [None]
  - TRAUMATIC LUNG INJURY [None]
  - CONCUSSION [None]
  - FALL [None]
  - RIB FRACTURE [None]
  - HYPOPHAGIA [None]
